FAERS Safety Report 13486620 (Version 1)
Quarter: 2017Q2

REPORT INFORMATION
  Report Type: Spontaneous
  Country: US (occurrence: US)
  Receive Date: 20170426
  Receipt Date: 20170426
  Transmission Date: 20170830
  Serious: Yes (Hospitalization, Other)
  Sender: FDA-Public Use
  Company Number: US-HORMOSAN-2017-01953

PATIENT
  Age: 75 Year
  Sex: Female

DRUGS (3)
  1. MEMANTINE HYDROCHLORIDE TABLETS USP, 10 MG [Suspect]
     Active Substance: MEMANTINE HYDROCHLORIDE
     Indication: MENTAL DISORDER
     Dosage: 10 MG, BID
     Route: 048
  2. SODIUM                             /90005801/ [Concomitant]
     Indication: PRODUCT USED FOR UNKNOWN INDICATION
     Dosage: UNK
     Route: 048
  3. MEMANTINE HYDROCHLORIDE TABLETS USP, 10 MG [Suspect]
     Active Substance: MEMANTINE HYDROCHLORIDE
     Dosage: 10 MG, QD
     Route: 048

REACTIONS (5)
  - Cerebrovascular accident [Not Recovered/Not Resolved]
  - Dizziness [Not Recovered/Not Resolved]
  - Asthenia [Not Recovered/Not Resolved]
  - Somnolence [Unknown]
  - Muscle rigidity [Recovered/Resolved]
